FAERS Safety Report 9797112 (Version 3)
Quarter: 2014Q1

REPORT INFORMATION
  Report Type: Report from Study
  Country: DE (occurrence: DE)
  Receive Date: 20140106
  Receipt Date: 20140321
  Transmission Date: 20141002
  Serious: Yes (Hospitalization, Other)
  Sender: FDA-Public Use
  Company Number: PHHY2013DE153656

PATIENT
  Sex: Male
  Weight: 80 kg

DRUGS (1)
  1. SANDOSTATIN LAR [Suspect]
     Indication: ACROMEGALY
     Dosage: 30 MG, EVERY 28 DAYS
     Dates: start: 20050102

REACTIONS (2)
  - Cerebrovascular accident [Not Recovered/Not Resolved]
  - Loss of consciousness [Unknown]
